FAERS Safety Report 9161759 (Version 2)
Quarter: 2013Q3

REPORT INFORMATION
  Report Type: Spontaneous
  Country: US (occurrence: US)
  Receive Date: 20130314
  Receipt Date: 20130701
  Transmission Date: 20140515
  Serious: No
  Sender: FDA-Public Use
  Company Number: US-BIOGENIDEC-2013BI022141

PATIENT
  Age: 31 Year
  Sex: Female

DRUGS (1)
  1. TYSABRI [Suspect]
     Indication: MULTIPLE SCLEROSIS
     Route: 042
     Dates: start: 20130225

REACTIONS (11)
  - Migraine [Recovered/Resolved]
  - Oligomenorrhoea [Unknown]
  - Hypoaesthesia [Unknown]
  - Myalgia [Unknown]
  - Pain [Unknown]
  - Back pain [Recovered/Resolved]
  - Pain in extremity [Recovered/Resolved]
  - Fungal infection [Not Recovered/Not Resolved]
  - Asthenia [Recovered/Resolved]
  - Fatigue [Recovered/Resolved]
  - Headache [Recovered/Resolved]
